FAERS Safety Report 21087566 (Version 2)
Quarter: 2022Q3

REPORT INFORMATION
  Report Type: Spontaneous
  Country: PT (occurrence: PT)
  Receive Date: 20220715
  Receipt Date: 20220926
  Transmission Date: 20221027
  Serious: Yes (Disabling, Other)
  Sender: FDA-Public Use
  Company Number: None

PATIENT
  Age: 65 Year
  Sex: Female

DRUGS (3)
  1. CINACALCET HYDROCHLORIDE [Suspect]
     Active Substance: CINACALCET HYDROCHLORIDE
     Indication: Product used for unknown indication
     Dosage: PRESCRIBED IT 3XDAY,BUT PATIENT ONLY TOOK IT 1XDAY
     Route: 048
     Dates: start: 2019, end: 202201
  2. LEVOTHYROXINE SODIUM [Concomitant]
     Active Substance: LEVOTHYROXINE SODIUM
     Indication: Product used for unknown indication
     Dosage: 75 MICROGRAM, QD, 1X DAY EVERY DAY
     Route: 065
  3. ASPIRIN [Concomitant]
     Active Substance: ASPIRIN
     Indication: Myocardial ischaemia
     Dosage: 100 MILLIGRAM, QD, 1 PER DAY
     Route: 065

REACTIONS (4)
  - Pain of skin [Unknown]
  - Blindness [Unknown]
  - Strabismus [Unknown]
  - Dysphonia [Unknown]

NARRATIVE: CASE EVENT DATE: 20190101
